FAERS Safety Report 5079834-9 (Version None)
Quarter: 2006Q3

REPORT INFORMATION
  Report Type: 
  Country: None (occurrence: None)
  Receive Date: 20060720
  Receipt Date: 20051031
  Transmission Date: 20061208
  Serious: Yes (Other)
  Sender: FDA-Public Use
  Company Number: 2005081032

PATIENT
  Sex: Female
  Weight: 65.7716 kg

DRUGS (6)
  1. CELEBREX [Suspect]
     Indication: ARTHRITIS
     Dosage: 200 MG (200 MG,1 IN 1 D),ORAL
     Route: 048
  2. ASPIRIN [Suspect]
     Indication: ILL-DEFINED DISORDER
  3. FOSAMAX [Suspect]
     Indication: ILL-DEFINED DISORDER
  4. THYROID TAB [Suspect]
     Indication: ILL-DEFINED DISORDER
  5. CHOLESTEROL (CHOLESTEROL) [Suspect]
     Indication: ILL-DEFINED DISORDER
  6. ANTI-DIABETICS (ANTI-DIABETICS) [Suspect]
     Indication: DIABETES MELLITUS

REACTIONS (6)
  - DIABETES MELLITUS [None]
  - INFECTION [None]
  - LOWER LIMB FRACTURE [None]
  - MUSCULOSKELETAL STIFFNESS [None]
  - PAIN [None]
  - RASH [None]
